FAERS Safety Report 12377411 (Version 3)
Quarter: 2016Q3

REPORT INFORMATION
  Report Type: Spontaneous
  Country: US (occurrence: US)
  Receive Date: 20160517
  Receipt Date: 20160715
  Transmission Date: 20161109
  Serious: Yes (Other)
  Sender: FDA-Public Use
  Company Number: US-PFIZER INC-2016254211

PATIENT
  Age: 73 Year
  Sex: Female
  Weight: 83 kg

DRUGS (7)
  1. PREMARIN [Suspect]
     Active Substance: ESTROGENS, CONJUGATED
     Indication: VAGINAL DISORDER
     Dosage: 1 G, 2X/DAY, 0.625 MG/G
     Route: 067
     Dates: start: 201604
  2. PREMARIN [Suspect]
     Active Substance: ESTROGENS, CONJUGATED
     Indication: BLADDER NECK SUSPENSION
  3. BABY ASPIRIN [Concomitant]
     Active Substance: ASPIRIN
     Indication: CARDIAC DISORDER
     Dosage: 1 DF (ONE TABLET), DAILY
     Route: 048
     Dates: start: 2012
  4. MSM [Concomitant]
     Active Substance: DIMETHYL SULFONE
     Indication: INFLAMMATION
     Dosage: 1 DF (ONE CAPSULE), DAILY
     Route: 048
     Dates: start: 2013
  5. FISH OIL [Concomitant]
     Active Substance: FISH OIL
     Indication: CARDIAC DISORDER
     Dosage: 1 DF (ONE GELCAP), 2X/DAY
     Route: 048
     Dates: start: 2000
  6. ATENOLOL. [Concomitant]
     Active Substance: ATENOLOL
     Indication: HYPERTENSION
     Dosage: 50 MG, DAILY
     Route: 048
     Dates: start: 2011
  7. ESTRACE [Suspect]
     Active Substance: ESTRADIOL
     Dosage: UNK
     Dates: start: 201409

REACTIONS (3)
  - Contraindicated product administered [Recovered/Resolved]
  - Product use issue [Not Recovered/Not Resolved]
  - Breast mass [Not Recovered/Not Resolved]

NARRATIVE: CASE EVENT DATE: 201605
